FAERS Safety Report 7576674-3 (Version None)
Quarter: 2011Q2

REPORT INFORMATION
  Report Type: 
  Country: None (occurrence: None)
  Receive Date: 20110628
  Receipt Date: 20110204
  Transmission Date: 20111010
  Serious: Yes (Hospitalization)
  Sender: FDA-Public Use
  Company Number: US-BAYER-201033875NA

PATIENT
  Age: 37 Year
  Sex: Female
  Weight: 69.388 kg

DRUGS (15)
  1. METHOCARBAMOL [Concomitant]
     Dosage: 500 MG, PRN
     Route: 048
  2. LEVAQUIN [Concomitant]
     Dosage: UNK
     Dates: start: 20060301
  3. SINGULAIR [Concomitant]
     Indication: ASTHMA
     Dosage: 10 MG, QD
     Route: 048
     Dates: start: 19830101
  4. CLONAZEPAM [Concomitant]
     Indication: ANXIETY
     Dosage: 0.5 MG, UNK
     Dates: start: 20061001
  5. PROVENTIL [Concomitant]
     Indication: ASTHMA
     Dosage: UNK UNK, PRN
     Dates: start: 19830101
  6. CARTIA XT [Concomitant]
     Indication: TACHYCARDIA
     Dosage: UNK
     Dates: start: 20060101
  7. LEXAPRO [Concomitant]
     Indication: ANXIETY
     Dosage: 10 MG, QD
     Route: 048
     Dates: start: 20061001, end: 20061101
  8. CEFAZOLIN [Concomitant]
     Dosage: UNK
     Dates: start: 20060501
  9. ALBUTEROL SULFATE AUTOHALER [Concomitant]
     Indication: ASTHMA
     Dosage: UNK UNK, PRN
     Dates: start: 19830101
  10. PAXIL [Concomitant]
     Indication: ANXIETY
     Dosage: UNK
     Dates: start: 20060101
  11. MULTI-VITAMINS [Concomitant]
     Dosage: 1 DF, QD
     Route: 048
     Dates: start: 20061101
  12. SOMA [Concomitant]
  13. YASMIN [Suspect]
     Indication: DYSMENORRHOEA
     Dosage: UNK UNK, UNK
     Route: 048
     Dates: start: 20060911, end: 20061122
  14. NAPROXEN [Concomitant]
  15. IBUPROFEN [Concomitant]

REACTIONS (9)
  - SKIN DISCOLOURATION [None]
  - SENSATION OF HEAVINESS [None]
  - OEDEMA PERIPHERAL [None]
  - DEEP VEIN THROMBOSIS [None]
  - GAIT DISTURBANCE [None]
  - VENOUS INJURY [None]
  - CHEST PAIN [None]
  - PELVIC VENOUS THROMBOSIS [None]
  - PAIN [None]
